FAERS Safety Report 20724074 (Version 3)
Quarter: 2023Q1

REPORT INFORMATION
  Report Type: Spontaneous
  Country: GR (occurrence: GR)
  Receive Date: 20220419
  Receipt Date: 20230102
  Transmission Date: 20230417
  Serious: Yes (Other)
  Sender: FDA-Public Use
  Company Number: GR-Accord-261072

PATIENT
  Age: 57 Year
  Sex: Female

DRUGS (2)
  1. CISPLATIN [Suspect]
     Active Substance: CISPLATIN
     Indication: Angiosarcoma
     Dosage: 80MG/M2, D1, EVERY 21 DAYS, 80 MG/M2, D1, DOSE:320 MG/M2 MILLIGRAM(S)/SQ. METER
  2. VINORELBINE [Suspect]
     Active Substance: VINORELBINE TARTRATE
     Indication: Angiosarcoma
     Dosage: 30MG/M2, D1,8,

REACTIONS (3)
  - Gastrointestinal toxicity [Recovered/Resolved]
  - Nephropathy toxic [Recovered/Resolved]
  - Haematotoxicity [Recovered/Resolved]
